FAERS Safety Report 5939425-1 (Version None)
Quarter: 2008Q4

REPORT INFORMATION
  Report Type: 
  Country: None (occurrence: None)
  Receive Date: 20081029
  Receipt Date: 20081022
  Transmission Date: 20090506
  Serious: Yes (Hospitalization, Other)
  Sender: FDA-Public Use
  Company Number: 014020

PATIENT
  Age: 63 Year
  Sex: Female

DRUGS (2)
  1. GLYCERYL TRINITRATE(GLYCERYL TRINITRATE) SUSTAINED-RELEASE CAPSULE [Suspect]
     Indication: ARTERIOSPASM CORONARY
     Dosage: INTRAVENOUS, INTRACORONARY
  2. VERAPAMIL HCL [Suspect]
     Indication: ARTERIOSPASM CORONARY
     Dosage: INTRACORONARY
     Route: 022

REACTIONS (3)
  - DRUG EFFECT DECREASED [None]
  - INTRACARDIAC THROMBUS [None]
  - POST PROCEDURAL MYOCARDIAL INFARCTION [None]
